FAERS Safety Report 6007197-0 (Version None)
Quarter: 2008Q4

REPORT INFORMATION
  Report Type: 
  Country: None (occurrence: None)
  Receive Date: 20081217
  Receipt Date: 20080506
  Transmission Date: 20090506
  Serious: Yes (Hospitalization)
  Sender: FDA-Public Use
  Company Number: US-ASTRAZENECA-2008UW03400

PATIENT
  Age: 60 Year
  Sex: Female
  Weight: 95.3 kg

DRUGS (9)
  1. CRESTOR [Suspect]
     Indication: BLOOD CHOLESTEROL INCREASED
     Route: 048
     Dates: end: 20080122
  2. TRICOR [Suspect]
     Indication: BLOOD TRIGLYCERIDES INCREASED
     Dates: end: 20080122
  3. ZETIA [Concomitant]
     Indication: BLOOD CHOLESTEROL INCREASED
  4. LOVAZA [Concomitant]
     Indication: BLOOD TRIGLYCERIDES INCREASED
  5. PANCREASE MT 16 [Concomitant]
     Indication: PANCREATITIS CHRONIC
  6. ALBUTEROL [Concomitant]
     Indication: CHRONIC OBSTRUCTIVE PULMONARY DISEASE
  7. ALBUTEROL [Concomitant]
     Indication: ASTHMA
  8. GABAPENTIN [Concomitant]
     Indication: NEUROPATHY PERIPHERAL
  9. PERCOCET [Concomitant]
     Dosage: 5/325 MG

REACTIONS (2)
  - RENAL FAILURE ACUTE [None]
  - RHABDOMYOLYSIS [None]
